FAERS Safety Report 6744991-2 (Version None)
Quarter: 2010Q2

REPORT INFORMATION
  Report Type: 
  Country: None (occurrence: None)
  Receive Date: 20100527
  Receipt Date: 20100518
  Transmission Date: 20101027
  Serious: Yes (Death, Hospitalization)
  Sender: FDA-Public Use
  Company Number: DE-ROCHE-703934

PATIENT
  Sex: Female

DRUGS (2)
  1. CAPECITABINE [Suspect]
     Dosage: PERMANENTLY DISCONTINUED
     Route: 048
     Dates: start: 20100308, end: 20100322
  2. BLINDED WX-671 [Suspect]
     Dosage: DOSE BLINDED; PERMANENTLY DISCONTINUED
     Route: 048
     Dates: start: 20100308, end: 20100320

REACTIONS (1)
  - NAUSEA [None]
